FAERS Safety Report 9190175 (Version 1)
Quarter: 2013Q1

REPORT INFORMATION
  Report Type: Spontaneous
  Country: US (occurrence: None)
  Receive Date: 20130325
  Receipt Date: 20130325
  Transmission Date: 20140127
  Serious: Yes (Life-Threatening, Other)
  Sender: FDA-Public Use
  Company Number: None

PATIENT
  Age: 61 Year
  Sex: Female
  Weight: 68.95 kg

DRUGS (1)
  1. CYMBALTA 30MG [Suspect]
     Indication: NEURALGIA
     Dosage: 30MG 1 - DAILY
     Dates: start: 20121221

REACTIONS (8)
  - Epistaxis [None]
  - Vision blurred [None]
  - Irritability [None]
  - Arthralgia [None]
  - Palpitations [None]
  - Serotonin syndrome [None]
  - Drug interaction [None]
  - Drug withdrawal syndrome [None]
